FAERS Safety Report 19745043 (Version 1)
Quarter: 2021Q3

REPORT INFORMATION
  Report Type: Spontaneous
  Country: CA (occurrence: CA)
  Receive Date: 20210825
  Receipt Date: 20210825
  Transmission Date: 20211014
  Serious: Yes (Hospitalization)
  Sender: FDA-Public Use
  Company Number: CA-PFIZER INC-202101065025

PATIENT
  Age: 33 Year
  Sex: Female
  Weight: 65 kg

DRUGS (2)
  1. METHOTREXATE SODIUM. [Suspect]
     Active Substance: METHOTREXATE SODIUM
     Dosage: 90 MG, SINGLE
     Route: 030
  2. METHOTREXATE SODIUM. [Suspect]
     Active Substance: METHOTREXATE SODIUM
     Dosage: 90 MG, SINGLE
     Route: 030

REACTIONS (4)
  - Necrosis [Recovered/Resolved]
  - Product use issue [Unknown]
  - Abdominal pain lower [Recovered/Resolved]
  - Off label use [Unknown]
